FAERS Safety Report 10339928 (Version 2)
Quarter: 2014Q3

REPORT INFORMATION
  Report Type: Spontaneous
  Country: CA (occurrence: CA)
  Receive Date: 20140724
  Receipt Date: 20140724
  Transmission Date: 20150326
  Serious: Yes (Hospitalization, Other)
  Sender: FDA-Public Use
  Company Number: CA-BAXTER-2014BAX038668

PATIENT
  Age: 71 Year
  Sex: Male

DRUGS (2)
  1. DIANEAL W/ DEXTROSE 2.5% [Suspect]
     Active Substance: CALCIUM CHLORIDE\DEXTROSE\MAGNESIUM CHLORIDE\SODIUM CHLORIDE\SODIUM LACTATE
     Indication: PERITONEAL DIALYSIS
     Dosage: 3 BAGS
     Route: 033
  2. DIANEAL W/ DEXTROSE 1.5% [Suspect]
     Active Substance: CALCIUM CHLORIDE\DEXTROSE\MAGNESIUM CHLORIDE\SODIUM CHLORIDE\SODIUM LACTATE
     Indication: PERITONEAL DIALYSIS
     Dosage: 1 BAG
     Route: 033

REACTIONS (5)
  - Gangrene [Unknown]
  - Hypotension [Unknown]
  - Pain in extremity [Unknown]
  - Cerebrovascular accident [Unknown]
  - Peripheral circulatory failure [Unknown]

NARRATIVE: CASE EVENT DATE: 20140702
